FAERS Safety Report 16017306 (Version 6)
Quarter: 2021Q1

REPORT INFORMATION
  Report Type: Spontaneous
  Country: US (occurrence: US)
  Receive Date: 20190228
  Receipt Date: 20210119
  Transmission Date: 20210419
  Serious: Yes (Other)
  Sender: FDA-Public Use
  Company Number: US-PFIZER INC-2016078179

PATIENT
  Age: 60 Year
  Sex: Female

DRUGS (1)
  1. XELJANZ [Suspect]
     Active Substance: TOFACITINIB CITRATE
     Dosage: 5 MG, UNK
     Route: 048

REACTIONS (6)
  - Pain [Unknown]
  - Asthenia [Unknown]
  - Hip fracture [Unknown]
  - Lower limb fracture [Unknown]
  - Fall [Unknown]
  - Upper limb fracture [Unknown]
